FAERS Safety Report 8734703 (Version 2)
Quarter: 2014Q2

REPORT INFORMATION
  Report Type: Spontaneous
  Country: GB (occurrence: GB)
  Receive Date: 20120821
  Receipt Date: 20140501
  Transmission Date: 20141212
  Serious: Yes (Death, Other)
  Sender: FDA-Public Use
  Company Number: PHHY2012GB071795

PATIENT
  Age: 12 Day
  Sex: Male

DRUGS (4)
  1. DIAZEPAM [Suspect]
     Route: 064
  2. METHADONE [Suspect]
     Route: 064
  3. DIACETYLMORPHINE [Suspect]
     Route: 064
  4. COCAINE [Suspect]
     Route: 064

REACTIONS (5)
  - Death [Fatal]
  - Premature baby [Unknown]
  - Low birth weight baby [Unknown]
  - Drug level increased [Unknown]
  - Foetal exposure during pregnancy [Unknown]
